FAERS Safety Report 20305596 (Version 1)
Quarter: 2022Q1

REPORT INFORMATION
  Report Type: Other
  Country: QA (occurrence: None)
  Receive Date: 20220106
  Receipt Date: 20220106
  Transmission Date: 20220424
  Serious: Yes (Hospitalization)
  Sender: FDA-Public Use
  Company Number: QA-ROCHE-2993781

PATIENT
  Age: 30 Year
  Sex: Female

DRUGS (1)
  1. PEGINTERFERON ALFA-2A [Suspect]
     Active Substance: PEGINTERFERON ALFA-2A
     Indication: Thrombocytosis
     Dosage: WEEKLY
     Route: 065

REACTIONS (2)
  - Platelet count increased [Unknown]
  - Maternal exposure during pregnancy [Unknown]
